FAERS Safety Report 9390726 (Version 1)
Quarter: 2013Q3

REPORT INFORMATION
  Report Type: Spontaneous
  Country: US (occurrence: None)
  Receive Date: 20130705
  Receipt Date: 20130705
  Transmission Date: 20140515
  Serious: Yes (Other)
  Sender: FDA-Public Use
  Company Number: None

PATIENT
  Age: 57 Year
  Sex: Female
  Weight: 96.62 kg

DRUGS (1)
  1. LIVALO [Suspect]
     Indication: HYPERCHOLESTEROLAEMIA
     Dosage: 2 MG ONE PO
     Route: 048
     Dates: start: 20110404

REACTIONS (4)
  - Muscle disorder [None]
  - Myalgia [None]
  - Tremor [None]
  - Myopathy [None]
